FAERS Safety Report 15093704 (Version 1)
Quarter: 2018Q2

REPORT INFORMATION
  Report Type: Report from Study
  Country: BR (occurrence: BR)
  Receive Date: 20180629
  Receipt Date: 20180629
  Transmission Date: 20180711
  Serious: Yes (Other)
  Sender: FDA-Public Use
  Company Number: PHHY2018BR032906

PATIENT
  Sex: Male
  Weight: 90 kg

DRUGS (6)
  1. RITALIN LA [Suspect]
     Active Substance: METHYLPHENIDATE HYDROCHLORIDE
     Indication: COGNITIVE DISORDER
     Dosage: 1 DF (10 MG), QD (LAST THURSDAY, ON THE 21)
     Route: 048
  2. RITALINA [Suspect]
     Active Substance: METHYLPHENIDATE HYDROCHLORIDE
     Indication: COGNITIVE DISORDER
     Dosage: 0.5 DF (10 MG), BID (HALF TABLET IN THE MORNING AND HALF IN AFTERNOON)
     Route: 048
  3. TEGRETOL XR [Suspect]
     Active Substance: CARBAMAZEPINE
     Indication: BIPOLAR DISORDER
     Dosage: 1 G, QD (HE USED 2 TABLETS OF 400MG AND 1 OF 200MG)
     Route: 048
     Dates: start: 201610
  4. LAMITOR [Concomitant]
     Active Substance: LAMOTRIGINE
     Indication: SLEEP DISORDER
     Dosage: 25 MG, QD (STOPPED ON 13 JUN, YEAR NOT REPORTED)
     Route: 048
     Dates: start: 201611
  5. RITALINA [Suspect]
     Active Substance: METHYLPHENIDATE HYDROCHLORIDE
     Indication: ATTENTION DEFICIT/HYPERACTIVITY DISORDER
     Dosage: 1 DF (20 MG), BID (20MG IN THE MORNING AND 20MG AFTER LUNCH)
     Route: 048
  6. DORENE [Concomitant]
     Indication: BIPOLAR DISORDER
     Dosage: 1 DF, QN (IN END OF 2017, APPROXIMATELY IN SEPTEMBER)
     Route: 048

REACTIONS (9)
  - Aggression [Recovering/Resolving]
  - Condition aggravated [Recovering/Resolving]
  - Epigastric discomfort [Recovering/Resolving]
  - Product use in unapproved indication [Unknown]
  - Gastritis [Recovering/Resolving]
  - Agitation [Not Recovered/Not Resolved]
  - Bipolar disorder [Recovering/Resolving]
  - Abdominal pain [Recovering/Resolving]
  - Wrong technique in product usage process [Unknown]
